FAERS Safety Report 16186758 (Version 1)
Quarter: 2019Q2

REPORT INFORMATION
  Report Type: Spontaneous
  Country: US (occurrence: US)
  Receive Date: 20190411
  Receipt Date: 20190411
  Transmission Date: 20190711
  Serious: Yes (Hospitalization)
  Sender: FDA-Public Use
  Company Number: US-ELI_LILLY_AND_COMPANY-US201904003817

PATIENT
  Sex: Female

DRUGS (2)
  1. FEMARA [Concomitant]
     Active Substance: LETROZOLE
     Indication: BREAST CANCER
  2. VERZENIO [Suspect]
     Active Substance: ABEMACICLIB
     Indication: BREAST CANCER
     Dosage: UNK, UNKNOWN
     Route: 065

REACTIONS (4)
  - Dehydration [Recovering/Resolving]
  - Blood potassium increased [Recovering/Resolving]
  - Diarrhoea [Recovering/Resolving]
  - Blood creatinine increased [Recovering/Resolving]

NARRATIVE: CASE EVENT DATE: 201903
